FAERS Safety Report 5856561-9 (Version None)
Quarter: 2008Q3

REPORT INFORMATION
  Report Type: 
  Country: None (occurrence: None)
  Receive Date: 20080822
  Receipt Date: 20080822
  Transmission Date: 20090109
  Serious: Yes (Life-Threatening, Hospitalization, Other)
  Sender: FDA-Public Use
  Company Number: None

PATIENT
  Age: 74 Year
  Sex: Female
  Weight: 57.6068 kg

DRUGS (1)
  1. RECLAST [Suspect]
     Indication: OSTEOPOROSIS
     Dosage: 5 MG/100ML FIRST IV
     Route: 042
     Dates: start: 20080527

REACTIONS (4)
  - APHAGIA [None]
  - DYSKINESIA [None]
  - INFUSION RELATED REACTION [None]
  - MYOCARDIAL INFARCTION [None]
